FAERS Safety Report 9485693 (Version 1)
Quarter: 2013Q3

REPORT INFORMATION
  Report Type: Spontaneous
  Country: US (occurrence: None)
  Receive Date: 20130827
  Receipt Date: 20130827
  Transmission Date: 20140515
  Serious: No
  Sender: FDA-Public Use
  Company Number: None

PATIENT
  Age: 2 Month
  Sex: Female

DRUGS (1)
  1. HUMIRA [Suspect]
     Indication: CROHN^S DISEASE
     Dosage: 40 MG, ONCE EVERY OTHER WEEK, SUBCUTANEOUSLY
     Route: 058
     Dates: start: 20130514, end: 20130708

REACTIONS (4)
  - Rash [None]
  - Pyrexia [None]
  - Hepatic enzyme abnormal [None]
  - White blood cell count increased [None]
